FAERS Safety Report 4728428-0 (Version None)
Quarter: 2005Q3

REPORT INFORMATION
  Report Type: 
  Country: None (occurrence: None)
  Receive Date: 20050729
  Receipt Date: 20041201
  Transmission Date: 20060218
  Serious: No
  Sender: FDA-Public Use
  Company Number: US-GLAXOSMITHKLINE-A0535713A

PATIENT
  Age: 13 Year
  Sex: Female

DRUGS (4)
  1. ZANTAC [Suspect]
     Dosage: 75MG TWICE PER DAY
     Route: 048
     Dates: start: 20040901
  2. NASACORT [Concomitant]
  3. ALAVERT [Concomitant]
  4. MYLANTA [Concomitant]

REACTIONS (1)
  - DEPRESSED MOOD [None]
